FAERS Safety Report 6108352-1 (Version None)
Quarter: 2009Q1

REPORT INFORMATION
  Report Type: 
  Country: None (occurrence: None)
  Receive Date: 20090309
  Receipt Date: 20090225
  Transmission Date: 20090719
  Serious: Yes (Hospitalization)
  Sender: FDA-Public Use
  Company Number: FR-PFIZER INC-2009178256

PATIENT

DRUGS (14)
  1. XANAX [Suspect]
     Dosage: UNK
     Route: 048
  2. LYSANXIA [Suspect]
     Dosage: 10 MG, AS NEEDED
     Route: 048
     Dates: end: 20081127
  3. ANAFRANIL [Suspect]
     Dosage: UNK
     Route: 048
  4. MEPRONIZINE [Suspect]
     Route: 048
     Dates: end: 20081127
  5. AMLOR [Concomitant]
  6. GLYBURIDE [Concomitant]
     Dates: end: 20081127
  7. ASPIRIN [Concomitant]
  8. NULYTELY [Concomitant]
     Dates: end: 20081127
  9. DIAMOX [Concomitant]
     Dates: end: 20081127
  10. ALPHAGAN [Concomitant]
     Dates: end: 20081127
  11. LANTUS [Concomitant]
  12. GLUCOPHAGE [Concomitant]
     Dates: end: 20081127
  13. ACTRAPID [Concomitant]
  14. GLUCAGEN [Concomitant]

REACTIONS (1)
  - FALL [None]
